FAERS Safety Report 11390264 (Version 2)
Quarter: 2015Q3

REPORT INFORMATION
  Report Type: Spontaneous
  Country: US (occurrence: None)
  Receive Date: 20150813
  Receipt Date: 20150908
  Transmission Date: 20151125
  Serious: Yes (Other)
  Sender: FDA-Public Use
  Company Number: 2015-US-0213

PATIENT
  Sex: Female

DRUGS (3)
  1. ZOFRAN (ONDANSETRON) [Concomitant]
  2. SANCUSO [Suspect]
     Active Substance: GRANISETRON
     Indication: PROPHYLAXIS OF NAUSEA AND VOMITING
     Dosage: 1 DOSAGE FORM X 1 PER 1 WEEK TRANSDERMAL
     Route: 062
     Dates: start: 20150720
  3. ALOXI (PALONOSETRON HYDROCHLORIDE) [Concomitant]

REACTIONS (2)
  - Product adhesion issue [None]
  - Platelet count decreased [None]

NARRATIVE: CASE EVENT DATE: 20150728
